FAERS Safety Report 16058566 (Version 1)
Quarter: 2019Q1

REPORT INFORMATION
  Report Type: Spontaneous
  Country: IT (occurrence: IT)
  Receive Date: 20190311
  Receipt Date: 20190311
  Transmission Date: 20190418
  Serious: Yes (Hospitalization)
  Sender: FDA-Public Use
  Company Number: IT-TEVA-2019-IT-1011297

PATIENT
  Age: 6 Year
  Sex: Male
  Weight: 21 kg

DRUGS (6)
  1. METOTRESSATO TEVA 25 MG/ML SOLUZIONE INIETTABILE [Suspect]
     Active Substance: METHOTREXATE SODIUM
     Indication: B PRECURSOR TYPE ACUTE LEUKAEMIA
     Dosage: 5000 MG/M2 DAILY;
     Route: 042
     Dates: start: 20180730, end: 20180731
  2. ENDOXAN BAXTER 1 G POLVERE PER SOLUZIONE INIETTABILE [Concomitant]
     Active Substance: CYCLOPHOSPHAMIDE
     Indication: ACUTE LYMPHOCYTIC LEUKAEMIA
     Route: 042
     Dates: start: 20180730, end: 20180804
  3. RANITIDINA S.A.L.F. 50 MG/5 ML SOLUZIONE INIETTABILE PER USO ENDOVENOS [Concomitant]
     Indication: ACUTE LYMPHOCYTIC LEUKAEMIA
     Route: 042
  4. ZOFRAN 4 MG COMPRESSE RIVESTITE CON FILM [Concomitant]
     Route: 048
  5. VINCRISTINA TEVA ITALIA 1 MG/ML SOLUZIONE INIETTABILE [Concomitant]
     Active Substance: VINCRISTINE SULFATE
     Indication: ACUTE LYMPHOCYTIC LEUKAEMIA
     Route: 042
  6. DECADRON 8MG/2ML SOLUZIONE INIETTABILE 1 FIALA DA 2 ML [Concomitant]
     Route: 042

REACTIONS (2)
  - Toxicity to various agents [Recovered/Resolved with Sequelae]
  - Blood creatinine increased [Recovered/Resolved with Sequelae]

NARRATIVE: CASE EVENT DATE: 20180731
